FAERS Safety Report 4979914-X (Version None)
Quarter: 2006Q2

REPORT INFORMATION
  Report Type: 
  Country: None (occurrence: None)
  Receive Date: 20060421
  Receipt Date: 20060329
  Transmission Date: 20061013
  Serious: Yes (Hospitalization, Disabling)
  Sender: FDA-Public Use
  Company Number: US-MERCK-0603USA04603

PATIENT
  Age: 46 Year
  Sex: Female
  Weight: 75 kg

DRUGS (3)
  1. VIOXX [Suspect]
     Indication: PAIN
     Route: 048
     Dates: start: 20020601, end: 20020601
  2. VIOXX [Suspect]
     Route: 048
     Dates: start: 20011101, end: 20020501
  3. EXTRA STRENGTH TYLENOL [Concomitant]
     Route: 065

REACTIONS (21)
  - ARTERIOSCLEROSIS CORONARY ARTERY [None]
  - BLOOD DISORDER [None]
  - CEREBRAL INFARCTION [None]
  - CEREBROVASCULAR ACCIDENT [None]
  - CHEST PAIN [None]
  - CONSTIPATION [None]
  - DEEP VEIN THROMBOSIS [None]
  - DEHYDRATION [None]
  - DEPRESSION [None]
  - DIZZINESS [None]
  - DRUG TOXICITY [None]
  - DYSPNOEA [None]
  - HEADACHE [None]
  - HYPERTENSION [None]
  - HYPOVOLAEMIA [None]
  - MAJOR DEPRESSION [None]
  - SCHIZOAFFECTIVE DISORDER [None]
  - TOOTHACHE [None]
  - TRANSIENT ISCHAEMIC ATTACK [None]
  - URINARY TRACT INFECTION [None]
  - UTERINE LEIOMYOMA [None]
